FAERS Safety Report 10152019 (Version 1)
Quarter: 2014Q2

REPORT INFORMATION
  Report Type: Spontaneous
  Country: JP (occurrence: None)
  Receive Date: 20140501
  Receipt Date: 20140501
  Transmission Date: 20141212
  Serious: Yes (Other)
  Sender: FDA-Public Use
  Company Number: FK201401473

PATIENT
  Sex: Male

DRUGS (5)
  1. HALOPERIDOL [Suspect]
     Indication: MANIA
  2. HALOPERIDOL [Suspect]
     Indication: DEPRESSION
  3. RISPERIDONE [Suspect]
     Indication: MANIA
  4. RISPERIDONE [Suspect]
     Indication: DEPRESSION
  5. ANTIDEPRESSANTS(ANTIDEPRESSANTS) [Concomitant]

REACTIONS (3)
  - Mental disorder [None]
  - Blunted affect [None]
  - Apathy [None]
